FAERS Safety Report 18691694 (Version 1)
Quarter: 2021Q1

REPORT INFORMATION
  Report Type: Spontaneous
  Country: GB (occurrence: GB)
  Receive Date: 20210102
  Receipt Date: 20210102
  Transmission Date: 20210419
  Serious: Yes (Other)
  Sender: FDA-Public Use
  Company Number: GB-AUROBINDO-AUR-APL-2020-063767

PATIENT
  Age: 47 Year
  Sex: Female
  Weight: 61.23 kg

DRUGS (4)
  1. FERROUS FUMARATE [Concomitant]
     Active Substance: FERROUS FUMARATE
     Indication: PRODUCT USED FOR UNKNOWN INDICATION
     Dosage: UNK
     Route: 065
  2. MONTELUKAST [Suspect]
     Active Substance: MONTELUKAST SODIUM
     Indication: PRODUCTIVE COUGH
     Dosage: 10 MILLIGRAM, ONCE A DAY (IN EVENING)
     Route: 048
     Dates: start: 20201212, end: 20201216
  3. FLUTIFORM [Concomitant]
     Active Substance: FLUTICASONE PROPIONATE\FORMOTEROL FUMARATE
     Indication: PRODUCT USED FOR UNKNOWN INDICATION
     Dosage: UNK
     Route: 055
  4. OMEPRAZOLE. [Concomitant]
     Active Substance: OMEPRAZOLE
     Indication: PRODUCT USED FOR UNKNOWN INDICATION
     Dosage: UNK
     Route: 065
     Dates: end: 202012

REACTIONS (5)
  - Abnormal dreams [Unknown]
  - Abdominal pain upper [Unknown]
  - Fatigue [Unknown]
  - Nightmare [Unknown]
  - Nausea [Unknown]

NARRATIVE: CASE EVENT DATE: 20201214
